FAERS Safety Report 4731316-7 (Version None)
Quarter: 2005Q3

REPORT INFORMATION
  Report Type: 
  Country: None (occurrence: None)
  Receive Date: 20050729
  Receipt Date: 20050719
  Transmission Date: 20060218
  Serious: Yes (Other)
  Sender: FDA-Public Use
  Company Number: 2005103888

PATIENT
  Sex: Female
  Weight: 92.5338 kg

DRUGS (7)
  1. SUDAFED 12 HOUR [Suspect]
     Indication: HYPERSENSITIVITY
     Dosage: ONE TAB, BID/TID AND THEN QD, ORAL
     Route: 048
  2. TRIAMCINOLONE ACETONIDE [Concomitant]
  3. ALPRAZOLAM [Concomitant]
  4. ALBUTEROL SULFATE HFA [Concomitant]
  5. THEOPHYLLINE [Concomitant]
  6. LOSARTAN POTASSIUM [Concomitant]
  7. OTHER ANTI-ASTHMATICS FOR SYSTEMIC USE [Concomitant]

REACTIONS (6)
  - APTYALISM [None]
  - DRUG DEPENDENCE [None]
  - DRUG WITHDRAWAL SYNDROME [None]
  - EAR CONGESTION [None]
  - FEELING JITTERY [None]
  - MUCOSAL DRYNESS [None]
